FAERS Safety Report 22344416 (Version 2)
Quarter: 2023Q2

REPORT INFORMATION
  Report Type: Spontaneous
  Country: JP (occurrence: JP)
  Receive Date: 20230519
  Receipt Date: 20230614
  Transmission Date: 20230721
  Serious: Yes (Other)
  Sender: FDA-Public Use
  Company Number: JP-BAYER-2023A065032

PATIENT
  Age: 22 Year
  Sex: Female
  Weight: 45 kg

DRUGS (2)
  1. YAZ [Suspect]
     Active Substance: DROSPIRENONE\ETHINYL ESTRADIOL
     Indication: Dysmenorrhoea
     Dosage: 1 DF, QD
     Route: 048
     Dates: start: 20230114, end: 20230526
  2. LOXOPROFEN SODIUM DIHYDRATE [Concomitant]
     Active Substance: LOXOPROFEN SODIUM DIHYDRATE
     Indication: Dysmenorrhoea

REACTIONS (4)
  - Ileus [Recovered/Resolved]
  - Gastroenteritis viral [Recovering/Resolving]
  - Abdominal distension [Recovering/Resolving]
  - Diarrhoea [None]

NARRATIVE: CASE EVENT DATE: 20230301
